FAERS Safety Report 5349278-0 (Version None)
Quarter: 2007Q2

REPORT INFORMATION
  Report Type: 
  Country: None (occurrence: None)
  Receive Date: 20070607
  Receipt Date: 20070604
  Transmission Date: 20071010
  Serious: Yes (Disabling)
  Sender: FDA-Public Use
  Company Number: A0654097A

PATIENT
  Age: 31 Year
  Sex: Female

DRUGS (4)
  1. LAMICTAL [Suspect]
     Dosage: 200MG TWICE PER DAY
     Route: 048
     Dates: start: 20060801
  2. CLONAZEPAM [Concomitant]
  3. HYDROCHLOROTHIAZIDE [Concomitant]
  4. LITHIUM CARBONATE [Concomitant]

REACTIONS (5)
  - GAIT DISTURBANCE [None]
  - IMPAIRED DRIVING ABILITY [None]
  - MOTOR DYSFUNCTION [None]
  - SPEECH DISORDER [None]
  - TREMOR [None]
